FAERS Safety Report 18447945 (Version 1)
Quarter: 2020Q4

REPORT INFORMATION
  Report Type: Spontaneous
  Country: US (occurrence: US)
  Receive Date: 20201030
  Receipt Date: 20201030
  Transmission Date: 20210114
  Serious: No
  Sender: FDA-Public Use
  Company Number: US-UPSHER-SMITH LABORATORIES, LLC-2020USL00526

PATIENT
  Age: 80 Year
  Sex: Female
  Weight: 63.49 kg

DRUGS (4)
  1. JANTOVEN [Suspect]
     Active Substance: WARFARIN SODIUM
     Indication: ATRIAL FIBRILLATION
     Dosage: 2.5 MG, 5X/WEEK (TUES, THUR, FRI, SAT, SUN)
     Route: 048
     Dates: start: 20200907, end: 20200921
  2. SYNTHROID [Concomitant]
     Active Substance: LEVOTHYROXINE SODIUM
  3. JANTOVEN [Suspect]
     Active Substance: WARFARIN SODIUM
     Dosage: 5 MG, 2X/WEEK (MON, WED)
     Route: 048
     Dates: start: 20200907, end: 20200921
  4. SYNTHROID [Concomitant]
     Active Substance: LEVOTHYROXINE SODIUM

REACTIONS (4)
  - Abdominal pain upper [Not Recovered/Not Resolved]
  - Arrhythmia [Not Recovered/Not Resolved]
  - Allergic reaction to excipient [Unknown]
  - Pollakiuria [Not Recovered/Not Resolved]

NARRATIVE: CASE EVENT DATE: 202009
